FAERS Safety Report 18615737 (Version 5)
Quarter: 2022Q1

REPORT INFORMATION
  Report Type: Spontaneous
  Country: US (occurrence: US)
  Receive Date: 20201215
  Receipt Date: 20220125
  Transmission Date: 20220423
  Serious: Yes (Hospitalization)
  Sender: FDA-Public Use
  Company Number: US-GLOBAL BLOOD THERAPEUTICS INC-US-GBT-20-03093

PATIENT
  Sex: Female

DRUGS (4)
  1. OXBRYTA [Suspect]
     Active Substance: VOXELOTOR
     Indication: Sickle cell disease
     Route: 048
     Dates: start: 20200912
  2. OXBRYTA [Suspect]
     Active Substance: VOXELOTOR
     Dosage: 1500 UNITS
     Route: 042
  3. JADENU [Suspect]
     Active Substance: DEFERASIROX
     Indication: Product used for unknown indication
     Dosage: NOT PROVIDED
  4. HYDROXYUREA [Concomitant]
     Active Substance: HYDROXYUREA
     Indication: Product used for unknown indication
     Dosage: NOT PROVIDED

REACTIONS (10)
  - Hip arthroplasty [Unknown]
  - Sickle cell anaemia with crisis [Unknown]
  - Infection [Unknown]
  - Weight decreased [Unknown]
  - Decreased appetite [Not Recovered/Not Resolved]
  - Headache [Unknown]
  - Faeces soft [Unknown]
  - Diarrhoea [Not Recovered/Not Resolved]
  - Therapy cessation [Unknown]
  - Incorrect route of product administration [Unknown]

NARRATIVE: CASE EVENT DATE: 20200101
